FAERS Safety Report 21329499 (Version 1)
Quarter: 2022Q3

REPORT INFORMATION
  Report Type: Spontaneous
  Country: US (occurrence: None)
  Receive Date: 20220913
  Receipt Date: 20220913
  Transmission Date: 20221027
  Serious: Yes (Hospitalization)
  Sender: FDA-Public Use
  Company Number: None

PATIENT
  Sex: Male

DRUGS (4)
  1. XGEVA [Suspect]
     Active Substance: DENOSUMAB
     Indication: Renal cancer
     Dosage: 120 MG/1.7ML SUBCUTANEOUS??INJECT 120 MG (1.7ML) SUBCUTANEOUSLY EVERY 4 WEEKS?
     Route: 058
     Dates: start: 20220712
  2. XGEVA [Suspect]
     Active Substance: DENOSUMAB
     Dosage: OTHER QUANTITY : 120 MG (.7ML);?FREQUENCY : MONTHLY;?
     Route: 058
  3. ATORVASTATIN [Concomitant]
     Active Substance: ATORVASTATIN
  4. BISOPROLOL FUMARATE [Concomitant]
     Active Substance: BISOPROLOL FUMARATE

REACTIONS (1)
  - Rehabilitation therapy [None]
